FAERS Safety Report 5444156-0 (Version None)
Quarter: 2007Q3

REPORT INFORMATION
  Report Type: 
  Country: None (occurrence: None)
  Receive Date: 20070904
  Receipt Date: 20070904
  Transmission Date: 20080115
  Serious: Yes (Hospitalization)
  Sender: FDA-Public Use
  Company Number: None

PATIENT
  Age: 46 Year
  Sex: Male

DRUGS (2)
  1. INVANZ [Suspect]
     Indication: OSTEOMYELITIS
     Dosage: 1 GM EVERY 24 HRS
     Dates: end: 20070523
  2. INVANZ [Suspect]
     Indication: OSTEOMYELITIS
     Dosage: 1 GM EVERY 24 HRS
     Dates: start: 20070520, end: 20070623

REACTIONS (1)
  - GRAND MAL CONVULSION [None]
